FAERS Safety Report 25339714 (Version 2)
Quarter: 2025Q4

REPORT INFORMATION
  Report Type: Spontaneous
  Country: JP (occurrence: JP)
  Receive Date: 20250521
  Receipt Date: 20251102
  Transmission Date: 20260117
  Serious: Yes (Hospitalization, Other)
  Sender: SANOFI AVENTIS
  Company Number: JP-SA-2025SA138170

PATIENT
  Age: 38 Year
  Sex: Female

DRUGS (2)
  1. INSULIN ASPART [Suspect]
     Active Substance: INSULIN ASPART
     Indication: Gestational diabetes
     Dosage: INCREASED TO 20 UNITS IN THE MORNING, 8 UNITS AT NOON, AND 18 UNITS IN THE EVENING
     Route: 065
  2. INSULIN ASPART [Suspect]
     Active Substance: INSULIN ASPART
     Dosage: UNK
     Route: 065

REACTIONS (8)
  - Hypothermia [Unknown]
  - Hypoglycaemia [Recovering/Resolving]
  - Altered state of consciousness [Recovering/Resolving]
  - Cold sweat [Recovering/Resolving]
  - Dyslalia [Recovering/Resolving]
  - Peripheral coldness [Recovering/Resolving]
  - Bradycardia [Unknown]
  - Maternal exposure during pregnancy [Unknown]
